FAERS Safety Report 6580799-9 (Version None)
Quarter: 2010Q1

REPORT INFORMATION
  Report Type: 
  Country: None (occurrence: None)
  Receive Date: 20100214
  Receipt Date: 20100212
  Transmission Date: 20100710
  Serious: Yes (Hospitalization)
  Sender: FDA-Public Use
  Company Number: SE-BRISTOL-MYERS SQUIBB COMPANY-14568257

PATIENT
  Age: 36 Year
  Sex: Female

DRUGS (4)
  1. BLINDED: BRIVANIB ALANINATE [Suspect]
     Indication: COLORECTAL CANCER METASTATIC
     Dosage: RESTARTED ON 18MAR09.INTERRUPTED ON 30MAR09 TO 13APR09 DISCONT ON 13APR09
     Route: 048
     Dates: start: 20090304, end: 20090330
  2. CETUXIMAB [Suspect]
     Indication: COLORECTAL CANCER METASTATIC
     Dosage: TOTAL DAILY DOSE = 600MG/400MG INTERRUPTED ON 30MAR09 TO 13APR09 DISCONT ON 13APR09
     Route: 042
     Dates: start: 20090311, end: 20090413
  3. IRINOTECAN HCL [Suspect]
     Indication: COLORECTAL CANCER METASTATIC
     Dosage: INTERRUPTED ON 30MAR09 TO 13APR09 DISCONT ON 13APR09
     Route: 042
     Dates: start: 20090311, end: 20090413
  4. BLINDED: PLACEBO [Suspect]
     Indication: COLORECTAL CANCER METASTATIC
     Dosage: RESTARTED ON 18MAR09.INTERRUPTED ON 30MAR09 TO 13APR09 DISCONT ON 13APR09
     Route: 048
     Dates: start: 20090304, end: 20090330

REACTIONS (1)
  - SUBILEUS [None]
